FAERS Safety Report 5694540-5 (Version None)
Quarter: 2008Q2

REPORT INFORMATION
  Report Type: 
  Country: None (occurrence: None)
  Receive Date: 20080404
  Receipt Date: 20080327
  Transmission Date: 20081010
  Serious: Yes (Hospitalization)
  Sender: FDA-Public Use
  Company Number: US-AVENTIS-200811682US

PATIENT
  Age: 9 Year
  Sex: Female
  Weight: 52.2 kg

DRUGS (2)
  1. LANTUS [Suspect]
     Route: 051
     Dates: start: 20040101
  2. NOVOLOG [Suspect]
     Dosage: DOSE: UNK

REACTIONS (7)
  - BLOOD GLUCOSE INCREASED [None]
  - BLOOD POTASSIUM DECREASED [None]
  - CONVULSION [None]
  - DRUG INEFFECTIVE [None]
  - DYSPNOEA [None]
  - KETOSIS [None]
  - VOMITING [None]
